FAERS Safety Report 5061380-X (Version None)
Quarter: 2006Q3

REPORT INFORMATION
  Report Type: 
  Country: None (occurrence: None)
  Receive Date: 20060719
  Receipt Date: 20060719
  Transmission Date: 20061208
  Serious: Yes (Hospitalization)
  Sender: FDA-Public Use
  Company Number: None

PATIENT
  Age: 80 Year
  Sex: Male

DRUGS (6)
  1. LACTULOSE [Suspect]
     Indication: CONSTIPATION
     Dosage: 30 ML QD
     Dates: start: 20060301
  2. FUROSEMIDE [Suspect]
     Indication: HYPERTENSION
     Dosage: 20 MG BID
     Dates: start: 20050901
  3. FELODIPINE [Suspect]
     Indication: HYPERTENSION
     Dosage: 5MG QAM
     Dates: start: 20050901
  4. VARDENAFIL [Concomitant]
  5. GLIPIZIDE [Concomitant]
  6. COLCHICINE [Concomitant]

REACTIONS (1)
  - HYPOTENSION [None]
